FAERS Safety Report 6939929-9 (Version None)
Quarter: 2010Q3

REPORT INFORMATION
  Report Type: 
  Country: None (occurrence: None)
  Receive Date: 20100825
  Receipt Date: 20100813
  Transmission Date: 20110219
  Serious: Yes (Other)
  Sender: FDA-Public Use
  Company Number: US-PFIZER INC-2009204602

PATIENT
  Sex: Female

DRUGS (3)
  1. NEURONTIN [Suspect]
     Indication: DIABETIC NEUROPATHY
     Dosage: UNK
     Route: 048
     Dates: start: 20060101
  2. GABAPENTIN [Suspect]
     Indication: DIABETIC NEUROPATHY
     Dosage: UNK
     Route: 048
     Dates: start: 20060101, end: 20060601
  3. GABAPENTIN [Suspect]
     Dosage: UNK
     Route: 048
     Dates: start: 20060601, end: 20091101

REACTIONS (11)
  - ARTHRALGIA [None]
  - ATTENTION DEFICIT/HYPERACTIVITY DISORDER [None]
  - BLOOD PRESSURE ABNORMAL [None]
  - CONTUSION [None]
  - DRUG DEPENDENCE [None]
  - HEADACHE [None]
  - LIMB DISCOMFORT [None]
  - MUSCLE TWITCHING [None]
  - SEDATION [None]
  - SUICIDAL BEHAVIOUR [None]
  - TREMOR [None]
